FAERS Safety Report 6357983-2 (Version None)
Quarter: 2009Q3

REPORT INFORMATION
  Report Type: 
  Country: None (occurrence: None)
  Receive Date: 20090916
  Receipt Date: 20090902
  Transmission Date: 20100115
  Serious: Yes (Other)
  Sender: FDA-Public Use
  Company Number: GB-CELGENEUS-167-20484-09090248

PATIENT
  Age: 29 Year
  Sex: Female
  Weight: 150 kg

DRUGS (9)
  1. INNOHEP [Suspect]
     Route: 058
     Dates: start: 20060625, end: 20060918
  2. INNOHEP [Suspect]
     Route: 058
     Dates: start: 20060919
  3. LABETALOL HCL [Concomitant]
     Indication: HYPERTENSION
     Route: 065
     Dates: start: 20060803
  4. SYNTOCINON [Concomitant]
     Route: 051
     Dates: start: 20061106, end: 20061106
  5. CEFUROXIME [Concomitant]
     Indication: INFECTION
     Route: 065
     Dates: start: 20061106, end: 20061106
  6. METRONIDAZOLE [Concomitant]
     Indication: INFECTION
     Route: 065
     Dates: start: 20061106, end: 20061110
  7. MEPERIDINE HCL [Concomitant]
     Route: 065
     Dates: start: 20061106, end: 20061107
  8. STEMETIL [Concomitant]
     Route: 065
     Dates: start: 20061106, end: 20061106
  9. PARACETAMOL [Concomitant]
     Route: 065
     Dates: start: 20061104, end: 20061107

REACTIONS (2)
  - DRUG EXPOSURE DURING PREGNANCY [None]
  - STILLBIRTH [None]
